FAERS Safety Report 5774761-3 (Version None)
Quarter: 2008Q2

REPORT INFORMATION
  Report Type: 
  Country: None (occurrence: None)
  Receive Date: 20080612
  Receipt Date: 20080527
  Transmission Date: 20081010
  Serious: Yes (Other)
  Sender: FDA-Public Use
  Company Number: B0523182A

PATIENT

DRUGS (7)
  1. TOPOTECAN HYDROCHLORIDE (FORMULATION UNKNOWN) (GENERIC) (TOPOTECAN) [Suspect]
     Indication: ACUTE LYMPHOCYTIC LEUKAEMIA
     Dosage: 2.4 MG//M2 / PER DAY / INTRAVENOUS
     Route: 042
  2. DEXAMETHASONE [Suspect]
     Dosage: 6 MG/M2 / PER DAY / ORAL
     Route: 048
  3. VINCRISTINE [Suspect]
     Dosage: 1.5 MG/M2 / PER DAY / INTRAVENOUS
     Route: 042
  4. COLASPASE (FORMULATION UNKNOWN) [Suspect]
     Dosage: INTRAMUSCULAR
     Route: 030
  5. METHOTREXATE [Concomitant]
  6. HYDROCORTISONE [Concomitant]
  7. CYTARABINE [Concomitant]

REACTIONS (2)
  - DRUG TOXICITY [None]
  - UPPER GASTROINTESTINAL HAEMORRHAGE [None]
